FAERS Safety Report 23918180 (Version 1)
Quarter: 2024Q2

REPORT INFORMATION
  Report Type: Report from Study
  Country: US (occurrence: US)
  Receive Date: 20240530
  Receipt Date: 20240530
  Transmission Date: 20240716
  Serious: No
  Sender: FDA-Public Use
  Company Number: US-SANDOZ-SDZ2024US052916

PATIENT
  Sex: Male

DRUGS (4)
  1. OMNITROPE [Suspect]
     Active Substance: SOMATROPIN
     Dosage: 5 MG (MILLIGRAM) ONCE DAILY
     Route: 030
  2. OMNITROPE [Suspect]
     Active Substance: SOMATROPIN
     Dosage: 5 MG (MILLIGRAM) ONCE DAILY
     Route: 030
  3. OMNITROPE [Suspect]
     Active Substance: SOMATROPIN
     Indication: Product used for unknown indication
     Dosage: 1X WEEKLY
     Route: 065
  4. OMNITROPE [Suspect]
     Active Substance: SOMATROPIN
     Indication: Product used for unknown indication
     Dosage: 1X WEEKLY
     Route: 065

REACTIONS (5)
  - Therapy change [Unknown]
  - Product dose omission issue [Unknown]
  - Device mechanical issue [Unknown]
  - Product leakage [Unknown]
  - Drug ineffective [Unknown]
